FAERS Safety Report 4843100-4 (Version None)
Quarter: 2005Q4

REPORT INFORMATION
  Report Type: 
  Country: None (occurrence: None)
  Receive Date: 20051027
  Receipt Date: 20050824
  Transmission Date: 20060501
  Serious: No
  Sender: FDA-Public Use
  Company Number: ZICO001288

PATIENT
  Age: 85 Year
  Sex: Female

DRUGS (1)
  1. PRIALT [Suspect]
     Dosage: INTRATHECAL
     Route: 037
     Dates: start: 20050805

REACTIONS (1)
  - ALOPECIA [None]
